FAERS Safety Report 9296805 (Version 3)
Quarter: 2014Q2

REPORT INFORMATION
  Report Type: Spontaneous
  Country: US (occurrence: US)
  Receive Date: 20130517
  Receipt Date: 20140424
  Transmission Date: 20141212
  Serious: Yes (Hospitalization, Other)
  Sender: FDA-Public Use
  Company Number: US-B.I. PHARMACEUTICALS,INC./RIDGEFIELD-2013-BI-13905BP

PATIENT
  Age: 79 Year
  Sex: Female
  Weight: 81.65 kg

DRUGS (11)
  1. PRADAXA [Suspect]
     Indication: CEREBROVASCULAR ACCIDENT PROPHYLAXIS
     Dosage: 300 MG
     Route: 048
     Dates: start: 201202, end: 20120708
  2. PRADAXA [Suspect]
     Indication: THROMBOSIS PROPHYLAXIS
  3. PRADAXA [Suspect]
     Indication: ATRIAL FIBRILLATION
  4. SIMVASTATIN [Concomitant]
     Dosage: 20 MG
     Route: 048
  5. AMOXICILLIN [Concomitant]
     Indication: CYSTITIS
     Dosage: 1500 MG
     Route: 048
  6. METOPROLOL [Concomitant]
     Dosage: 25 MG
     Route: 048
  7. LISINOPRIL [Concomitant]
     Dosage: 10 MG
     Route: 048
  8. AMIODARONE [Concomitant]
     Dosage: 200 MG
     Route: 048
  9. MAGNESIUM [Concomitant]
     Dosage: 400 MG
     Route: 048
  10. LEVOTHYROXINE [Concomitant]
     Dosage: 137 MCG
     Route: 048
  11. POTASSIUM [Concomitant]
     Dosage: 10 MEQ
     Route: 048

REACTIONS (4)
  - Basal ganglia stroke [Unknown]
  - Deep vein thrombosis [Unknown]
  - Haemorrhage [Unknown]
  - Thrombocytopenia [Unknown]
